FAERS Safety Report 8518797-8 (Version None)
Quarter: 2012Q3

REPORT INFORMATION
  Report Type: 
  Country: None (occurrence: None)
  Receive Date: 20120718
  Receipt Date: 20120711
  Transmission Date: 20120928
  Serious: Yes (Other)
  Sender: FDA-Public Use
  Company Number: PHHY2012BR060955

PATIENT
  Sex: Female
  Weight: 47 kg

DRUGS (1)
  1. EXELON [Suspect]
     Indication: PSYCHOTIC DISORDER
     Dosage: 4.6 MG, ONE ADHESIVE DAILY (9 MG/5 CM2)
     Route: 062

REACTIONS (7)
  - APPLICATION SITE ERYTHEMA [None]
  - NERVOUSNESS [None]
  - INCREASED APPETITE [None]
  - JOINT SWELLING [None]
  - FALL [None]
  - PAIN [None]
  - PRURITUS [None]
